FAERS Safety Report 5343764-5 (Version None)
Quarter: 2007Q2

REPORT INFORMATION
  Report Type: 
  Country: None (occurrence: None)
  Receive Date: 20070604
  Receipt Date: 20070523
  Transmission Date: 20071010
  Serious: Yes (Hospitalization)
  Sender: FDA-Public Use
  Company Number: JP-AMGEN-US222487

PATIENT
  Sex: Male
  Weight: 46 kg

DRUGS (9)
  1. ENBREL [Suspect]
     Indication: RHEUMATOID ARTHRITIS
     Route: 058
     Dates: start: 20070322, end: 20070410
  2. METALCAPTASE [Suspect]
     Indication: RHEUMATOID ARTHRITIS
     Route: 048
     Dates: end: 20070410
  3. PYDOXAL [Suspect]
     Indication: HYPOVITAMINOSIS
     Route: 048
     Dates: end: 20070412
  4. LOXONIN [Suspect]
     Indication: RHEUMATOID ARTHRITIS
     Route: 048
     Dates: end: 20070412
  5. BAKTAR [Concomitant]
     Route: 048
  6. MEVALOTIN [Concomitant]
     Indication: HYPERLIPIDAEMIA
     Route: 048
     Dates: end: 20070412
  7. AMOBAN [Concomitant]
     Indication: INSOMNIA
     Route: 048
  8. ZANTAC [Concomitant]
     Indication: GASTRIC ULCER
     Route: 048
  9. ISONIAZID [Concomitant]
     Indication: ANTIBIOTIC PROPHYLAXIS
     Route: 048
     Dates: start: 20070322

REACTIONS (1)
  - NEPHROTIC SYNDROME [None]
